FAERS Safety Report 13229446 (Version 1)
Quarter: 2017Q1

REPORT INFORMATION
  Report Type: Spontaneous
  Country: JP (occurrence: JP)
  Receive Date: 20170214
  Receipt Date: 20170214
  Transmission Date: 20170428
  Serious: Yes (Life-Threatening, Other)
  Sender: FDA-Public Use
  Company Number: JP-ACCORD-048045

PATIENT
  Age: 65 Year
  Sex: Male

DRUGS (2)
  1. ETOPOSIDE. [Suspect]
     Active Substance: ETOPOSIDE
     Indication: SQUAMOUS CELL CARCINOMA
     Dosage: DAY 1: CDDP 70 MG/M2 + VP-16 100MG/M2
  2. CISPLATIN. [Suspect]
     Active Substance: CISPLATIN
     Indication: SQUAMOUS CELL CARCINOMA
     Dosage: DAY 1: CDDP 70 MG/M2 + VP-16 100MG/M2

REACTIONS (3)
  - Leukopenia [Recovered/Resolved]
  - Pancytopenia [Unknown]
  - Pneumonia aspiration [Recovering/Resolving]
